FAERS Safety Report 7714320-6 (Version None)
Quarter: 2011Q3

REPORT INFORMATION
  Report Type: 
  Country: None (occurrence: None)
  Receive Date: 20110829
  Receipt Date: 20100129
  Transmission Date: 20111222
  Serious: No
  Sender: FDA-Public Use
  Company Number: 2010BI003515

PATIENT
  Age: 58 Year
  Sex: Female

DRUGS (1)
  1. TYSABRI [Suspect]
     Indication: MULTIPLE SCLEROSIS
     Route: 042
     Dates: start: 20091029

REACTIONS (6)
  - DIARRHOEA [None]
  - INSOMNIA [None]
  - CHROMATURIA [None]
  - VAGINAL INFECTION [None]
  - PROCTALGIA [None]
  - FATIGUE [None]
